FAERS Safety Report 19894213 (Version 2)
Quarter: 2021Q4

REPORT INFORMATION
  Report Type: Report from Study
  Country: HK (occurrence: HK)
  Receive Date: 20210928
  Receipt Date: 20211007
  Transmission Date: 20220303
  Serious: Yes (Hospitalization, Other)
  Sender: FDA-Public Use
  Company Number: HK-BRISTOL-MYERS SQUIBB COMPANY-BMS-2021-095613

PATIENT
  Age: 61 Year
  Sex: Male
  Weight: 59 kg

DRUGS (2)
  1. NIVOLUMAB [Suspect]
     Active Substance: NIVOLUMAB
     Indication: Hepatocellular carcinoma
     Dosage: 59.3 MILLIGRAM
     Route: 042
     Dates: start: 20210902, end: 20210902
  2. IPILIMUMAB [Suspect]
     Active Substance: IPILIMUMAB
     Indication: Hepatocellular carcinoma
     Dosage: 177.9 MILLIGRAM
     Route: 042
     Dates: start: 20210902, end: 20210902

REACTIONS (1)
  - Exophthalmos [Not Recovered/Not Resolved]

NARRATIVE: CASE EVENT DATE: 20210920
